FAERS Safety Report 15846493 (Version 2)
Quarter: 2019Q3

REPORT INFORMATION
  Report Type: Spontaneous
  Country: US (occurrence: US)
  Receive Date: 20190120
  Receipt Date: 20190715
  Transmission Date: 20191004
  Serious: Yes (Other)
  Sender: FDA-Public Use
  Company Number: US-SUN PHARMACEUTICAL INDUSTRIES LTD-2019R1-196216

PATIENT
  Age: 6 Year
  Sex: Male

DRUGS (3)
  1. HYDROCORTISONE. [Suspect]
     Active Substance: HYDROCORTISONE
     Indication: ECZEMA NUMMULAR
     Dosage: UNK
     Route: 061
  2. BETAMETHASONE. [Suspect]
     Active Substance: BETAMETHASONE
     Indication: ECZEMA NUMMULAR
     Dosage: UNK
     Route: 061
  3. TRIAMCINOLONE [Suspect]
     Active Substance: TRIAMCINOLONE
     Indication: ECZEMA NUMMULAR
     Dosage: UNK
     Route: 061

REACTIONS (5)
  - Steroid withdrawal syndrome [Unknown]
  - Perioral dermatitis [Recovered/Resolved]
  - Mental disorder [Unknown]
  - Drug dependence [Unknown]
  - Intentional product misuse [Unknown]
